FAERS Safety Report 18197852 (Version 1)
Quarter: 2020Q3

REPORT INFORMATION
  Report Type: Spontaneous
  Country: DE (occurrence: DE)
  Receive Date: 20200826
  Receipt Date: 20200826
  Transmission Date: 20201103
  Serious: Yes (Other)
  Sender: FDA-Public Use
  Company Number: DE-TEVA-2020-DE-1819731

PATIENT
  Age: 36 Year
  Sex: Female
  Weight: 72 kg

DRUGS (4)
  1. QUETIAPINE. [Suspect]
     Active Substance: QUETIAPINE
     Indication: BIPOLAR DISORDER
     Dosage: 25 [MG / D] / DOSAGE 12.5 TO 25 MG DAILY
     Route: 048
     Dates: start: 20181218, end: 20190903
  2. QUILONUM RETARD [Concomitant]
     Active Substance: LITHIUM CARBONATE
     Indication: BIPOLAR DISORDER
     Dosage: 900 [MG / D] / VARYING DOSAGE 450 TO 900 MG DAILY
     Route: 048
     Dates: start: 20181218, end: 20190907
  3. IMPFSTOFF FSME [Concomitant]
     Indication: IMMUNISATION
     Route: 030
     Dates: start: 20190625, end: 20190625
  4. FOLSAURE [Concomitant]
     Active Substance: FOLIC ACID
     Indication: PROPHYLAXIS OF NEURAL TUBE DEFECT
     Route: 048
     Dates: start: 20181218, end: 20190910

REACTIONS (2)
  - Gestational diabetes [Recovered/Resolved]
  - Exposure during pregnancy [Recovered/Resolved]
